FAERS Safety Report 4557912-8 (Version None)
Quarter: 2005Q1

REPORT INFORMATION
  Report Type: 
  Country: None (occurrence: None)
  Receive Date: 20050121
  Receipt Date: 20040112
  Transmission Date: 20050727
  Serious: Yes (Hospitalization)
  Sender: FDA-Public Use
  Company Number: US-BRISTOL-MYERS SQUIBB COMPANY-12481800

PATIENT
  Age: 45 Year
  Sex: Female

DRUGS (18)
  1. SERZONE [Suspect]
     Indication: DEPRESSION
     Dosage: 7-28-99 DOSE STARTED AT 50 MG 2TABS DAILY, 10-26-99 DOSE 100MG BID, 12-17-01 DOSE 100MG BEDTIME
     Route: 048
     Dates: start: 19990728
  2. ZITHROMAX [Suspect]
  3. BUSPAR [Concomitant]
     Dosage: LATER DECREASED TO 5 MG TID
  4. ALLEGRA-D [Concomitant]
  5. BIAXIN [Concomitant]
  6. CIPRO [Concomitant]
     Route: 048
  7. CARISOPRODOL [Concomitant]
  8. LEVAQUIN [Concomitant]
  9. AXID [Concomitant]
  10. LOESTRIN 1.5/30 [Concomitant]
  11. DITROPAN [Concomitant]
  12. PEPCID [Concomitant]
  13. FLAGYL [Concomitant]
  14. SKELAXIN [Concomitant]
  15. CLARITIN-D [Concomitant]
  16. AMBIEN [Concomitant]
  17. VIOXX [Concomitant]
  18. NEXIUM [Concomitant]

REACTIONS (12)
  - ABDOMINAL PAIN [None]
  - CHEST PAIN [None]
  - CYSTITIS [None]
  - HAEMATOCHEZIA [None]
  - HEADACHE [None]
  - HEPATIC ENZYME INCREASED [None]
  - HYPERSENSITIVITY [None]
  - NECK PAIN [None]
  - PAIN IN EXTREMITY [None]
  - PHARYNGITIS [None]
  - UPPER RESPIRATORY TRACT INFECTION [None]
  - URINARY TRACT INFECTION [None]
